FAERS Safety Report 8591466-4 (Version None)
Quarter: 2012Q3

REPORT INFORMATION
  Report Type: 
  Country: None (occurrence: None)
  Receive Date: 20120814
  Receipt Date: 20120807
  Transmission Date: 20120928
  Serious: Yes (Hospitalization)
  Sender: FDA-Public Use
  Company Number: IE-US-EMD SERONO, INC.-7139021

PATIENT
  Sex: Male

DRUGS (1)
  1. REBIF [Suspect]
     Indication: RELAPSING-REMITTING MULTIPLE SCLEROSIS
     Route: 058
     Dates: start: 20020901

REACTIONS (5)
  - HEMIPARESIS [None]
  - DIZZINESS [None]
  - MUSCULAR WEAKNESS [None]
  - BALANCE DISORDER [None]
  - GAIT DISTURBANCE [None]
